FAERS Safety Report 12173897 (Version 1)
Quarter: 2016Q1

REPORT INFORMATION
  Report Type: Spontaneous
  Country: US (occurrence: None)
  Receive Date: 20160311
  Receipt Date: 20160311
  Transmission Date: 20160526
  Serious: Yes (Hospitalization)
  Sender: FDA-Public Use
  Company Number: None

PATIENT
  Age: 74 Year
  Sex: Female

DRUGS (1)
  1. MOXIFLOXACIN 400MG [Suspect]
     Active Substance: MOXIFLOXACIN

REACTIONS (2)
  - Respiratory tract infection [None]
  - Tremor [None]

NARRATIVE: CASE EVENT DATE: 20160303
